FAERS Safety Report 13142343 (Version 1)
Quarter: 2017Q1

REPORT INFORMATION
  Report Type: Spontaneous
  Country: GB (occurrence: GB)
  Receive Date: 20170124
  Receipt Date: 20170124
  Transmission Date: 20170428
  Serious: Yes (Hospitalization, Other)
  Sender: FDA-Public Use
  Company Number: GB-TEVA-730675ACC

PATIENT
  Age: 73 Year
  Sex: Female
  Weight: 73.8 kg

DRUGS (10)
  1. ZYDELIG [Suspect]
     Active Substance: IDELALISIB
     Indication: CHRONIC LYMPHOCYTIC LEUKAEMIA
     Dosage: 300 MILLIGRAM DAILY;
     Route: 048
     Dates: start: 20150804, end: 20160122
  2. ZYDELIG [Suspect]
     Active Substance: IDELALISIB
     Dosage: 300 MILLIGRAM DAILY;
     Route: 048
     Dates: start: 20160504, end: 20160918
  3. ALFACALCIDOL [Concomitant]
     Active Substance: ALFACALCIDOL
  4. COTRIMOXAZOLE [Concomitant]
     Active Substance: SULFAMETHOXAZOLE\TRIMETHOPRIM
  5. ZYDELIG [Suspect]
     Active Substance: IDELALISIB
     Dosage: 200 MILLIGRAM DAILY;
     Route: 048
     Dates: start: 20160309
  6. LEVOTHYROXINE. [Concomitant]
     Active Substance: LEVOTHYROXINE
  7. SIMVASTATIN. [Suspect]
     Active Substance: SIMVASTATIN
     Indication: BLOOD CHOLESTEROL INCREASED
     Dosage: 10 MILLIGRAM DAILY;
     Route: 048
     Dates: end: 20160122
  8. ZYDELIG [Suspect]
     Active Substance: IDELALISIB
     Dosage: 50% DOSE
     Route: 065
     Dates: start: 20161010
  9. ACICLOVIR [Concomitant]
     Active Substance: ACYCLOVIR
  10. CALCIUM CARBONATE. [Concomitant]
     Active Substance: CALCIUM CARBONATE
     Indication: THYROIDECTOMY

REACTIONS (7)
  - Lymph node palpable [Unknown]
  - Diverticulum [Unknown]
  - Diarrhoea [Recovered/Resolved]
  - Weight decreased [Unknown]
  - Diarrhoea [Recovered/Resolved]
  - Large intestine polyp [Unknown]
  - Night sweats [Unknown]

NARRATIVE: CASE EVENT DATE: 20160117
